FAERS Safety Report 10192603 (Version 1)
Quarter: 2014Q2

REPORT INFORMATION
  Report Type: Report from Study
  Country: US (occurrence: US)
  Receive Date: 20140523
  Receipt Date: 20140523
  Transmission Date: 20141212
  Serious: Yes (Hospitalization)
  Sender: FDA-Public Use
  Company Number: US-ABBVIE-14P-163-1238520-00

PATIENT
  Sex: Female
  Weight: 83.99 kg

DRUGS (9)
  1. CREON [Suspect]
     Indication: PANCREATITIS CHRONIC
     Dosage: FILLED ONCE ON 27 OCT 2012, 15 BOTTLES.
     Route: 048
     Dates: start: 201210, end: 201310
  2. CREON [Suspect]
     Dosage: PRIOR TO MEALS AND SNACKS
     Route: 048
     Dates: start: 2014
  3. PERCOCET [Concomitant]
     Indication: PAIN
  4. SEROQUEL [Concomitant]
     Indication: INSOMNIA
  5. LITHIUM [Concomitant]
     Indication: MOOD SWINGS
  6. PRISTIQ [Concomitant]
     Indication: DEPRESSION
  7. TOPIRAMATE [Concomitant]
     Indication: ANXIETY
  8. KLONOPIN [Concomitant]
     Indication: ANXIETY
  9. NEXIUM [Concomitant]
     Indication: GASTROOESOPHAGEAL REFLUX DISEASE

REACTIONS (3)
  - Local swelling [Recovered/Resolved]
  - Abdominal pain [Recovered/Resolved]
  - Expired product administered [Not Recovered/Not Resolved]
